FAERS Safety Report 25418212 (Version 1)
Quarter: 2025Q2

REPORT INFORMATION
  Report Type: Spontaneous
  Country: US (occurrence: None)
  Receive Date: 20250606
  Receipt Date: 20250606
  Transmission Date: 20250716
  Serious: Yes (Hospitalization)
  Sender: FDA-CTU
  Company Number: None

PATIENT
  Age: 74 Year
  Sex: Male

DRUGS (1)
  1. LISINOPRIL [Suspect]
     Active Substance: LISINOPRIL
     Indication: Hypertension
     Dates: end: 20250521

REACTIONS (5)
  - Angioedema [None]
  - Swelling face [None]
  - Lip swelling [None]
  - Mouth swelling [None]
  - Therapy interrupted [None]

NARRATIVE: CASE EVENT DATE: 20250520
